FAERS Safety Report 15429556 (Version 4)
Quarter: 2018Q4

REPORT INFORMATION
  Report Type: Report from Study
  Country: US (occurrence: US)
  Receive Date: 20180926
  Receipt Date: 20181120
  Transmission Date: 20190204
  Serious: Yes (Other)
  Sender: FDA-Public Use
  Company Number: US-BRISTOL-MYERS SQUIBB COMPANY-BMS-2018-076782

PATIENT
  Sex: Female

DRUGS (1)
  1. NIVOLUMAB [Suspect]
     Active Substance: NIVOLUMAB
     Indication: NON-SMALL CELL LUNG CANCER
     Dosage: UNK, Q2WK
     Route: 042
     Dates: start: 201805

REACTIONS (16)
  - Muscular weakness [Unknown]
  - Lacrimation increased [Not Recovered/Not Resolved]
  - Burning sensation [Not Recovered/Not Resolved]
  - Pain [Unknown]
  - Sinus headache [Unknown]
  - Myalgia [Unknown]
  - Vision blurred [Unknown]
  - Abdominal pain upper [Unknown]
  - Incorrect product administration duration [Unknown]
  - Fatigue [Unknown]
  - Dyspnoea [Not Recovered/Not Resolved]
  - Adrenal neoplasm [Unknown]
  - Asthenia [Unknown]
  - Cataract [Unknown]
  - Headache [Recovered/Resolved]
  - Joint swelling [Not Recovered/Not Resolved]
